FAERS Safety Report 25932612 (Version 1)
Quarter: 2025Q4

REPORT INFORMATION
  Report Type: Spontaneous
  Country: CH (occurrence: CH)
  Receive Date: 20251017
  Receipt Date: 20251017
  Transmission Date: 20260117
  Serious: Yes (Other)
  Sender: BAXTER
  Company Number: None

PATIENT
  Age: 37 Year
  Sex: Female

DRUGS (5)
  1. CYCLOPHOSPHAMIDE [Suspect]
     Active Substance: CYCLOPHOSPHAMIDE
     Indication: Breast cancer metastatic
     Dosage: 100 MG, 2X A WEEK
     Route: 042
     Dates: start: 20250106, end: 20250217
  2. DOXORUBICIN [Suspect]
     Active Substance: DOXORUBICIN
     Indication: Breast cancer metastatic
     Dosage: 100 MG, 2X A WEEK
     Route: 042
     Dates: start: 20250106, end: 20250217
  3. SOLU-MEDROL [Suspect]
     Active Substance: METHYLPREDNISOLONE SODIUM SUCCINATE
     Indication: Prophylaxis of nausea and vomiting
     Dosage: 125 MG, 2X A WEEK
     Route: 042
     Dates: start: 20250106, end: 20250217
  4. ONDANSETRON [Concomitant]
     Active Substance: ONDANSETRON
     Indication: Prophylaxis of nausea and vomiting
     Dosage: 8 MG, 2X A WEEK
     Route: 042
     Dates: start: 20250106, end: 20250217
  5. FILGRASTIM [Concomitant]
     Active Substance: FILGRASTIM
     Dosage: 30X10*6 [IU] (MILLION INTERNATIONAL UNIT) (DAYS 8-12)
     Route: 058
     Dates: start: 20250113, end: 20250117

REACTIONS (5)
  - Amniotic cavity infection [Recovered/Resolved]
  - Amniocentesis abnormal [Unknown]
  - Premature labour [Recovered/Resolved]
  - Cervical incompetence [Unknown]
  - Maternal exposure during pregnancy [Recovered/Resolved]

NARRATIVE: CASE EVENT DATE: 20250106
